FAERS Safety Report 13066522 (Version 1)
Quarter: 2016Q4

REPORT INFORMATION
  Report Type: Spontaneous
  Country: NL (occurrence: NL)
  Receive Date: 20161227
  Receipt Date: 20161227
  Transmission Date: 20170207
  Serious: Yes (Death)
  Sender: FDA-Public Use
  Company Number: NL-PFIZER INC-2016596011

PATIENT
  Age: 59 Year
  Sex: Male

DRUGS (3)
  1. VORICONAZOLE. [Suspect]
     Active Substance: VORICONAZOLE
     Dosage: UNK
  2. AMPHOTERICIN B. [Suspect]
     Active Substance: AMPHOTERICIN B
     Dosage: UNK
  3. CASPOFUNGIN [Suspect]
     Active Substance: CASPOFUNGIN
     Dosage: UNK

REACTIONS (2)
  - Drug resistance [Fatal]
  - Treatment failure [Fatal]
